FAERS Safety Report 7021615-0 (Version None)
Quarter: 2010Q3

REPORT INFORMATION
  Report Type: 
  Country: None (occurrence: None)
  Receive Date: 20100928
  Receipt Date: 20100923
  Transmission Date: 20110219
  Serious: Yes (Death, Hospitalization)
  Sender: FDA-Public Use
  Company Number: 2010SP050684

PATIENT
  Age: 70 Year
  Sex: Male

DRUGS (4)
  1. ORGARAN [Suspect]
     Indication: PLATELET COUNT DECREASED
     Dosage: IV
     Route: 042
     Dates: start: 20100803, end: 20100815
  2. HEPARIN  (OTHER MFR) (HEPARIN) [Suspect]
  3. TEGELINE [Concomitant]
  4. CORTICOID [Concomitant]

REACTIONS (8)
  - AUTOMATISM [None]
  - BLOOD CREATINE PHOSPHOKINASE INCREASED [None]
  - BLOOD LACTATE DEHYDROGENASE INCREASED [None]
  - CYTOLYTIC HEPATITIS [None]
  - FIBRIN D DIMER INCREASED [None]
  - HAEMORRHAGIC STROKE [None]
  - IDIOPATHIC THROMBOCYTOPENIC PURPURA [None]
  - LOSS OF CONSCIOUSNESS [None]
